FAERS Safety Report 13139412 (Version 1)
Quarter: 2017Q1

REPORT INFORMATION
  Report Type: Spontaneous
  Country: US (occurrence: US)
  Receive Date: 20170123
  Receipt Date: 20170123
  Transmission Date: 20170428
  Serious: Yes (Other)
  Sender: FDA-Public Use
  Company Number: US-GLAXOSMITHKLINE-US2017008064

PATIENT
  Age: 67 Year
  Sex: Female

DRUGS (1)
  1. TRANSDERM SCOP [Suspect]
     Active Substance: SCOPOLAMINE
     Indication: MOTION SICKNESS
     Dosage: UNK
     Dates: start: 2015

REACTIONS (4)
  - Application site vesicles [Recovered/Resolved]
  - Fall [Recovered/Resolved]
  - Purulent discharge [Recovered/Resolved]
  - Hip fracture [Recovered/Resolved]
